FAERS Safety Report 5364619-6 (Version None)
Quarter: 2007Q2

REPORT INFORMATION
  Report Type: 
  Country: None (occurrence: None)
  Receive Date: 20070530
  Receipt Date: 20070122
  Transmission Date: 20071010
  Serious: No
  Sender: FDA-Public Use
  Company Number: 2007PV028768

PATIENT
  Age: 49 Year
  Sex: Female
  Weight: 109.3169 kg

DRUGS (5)
  1. BYETTA [Suspect]
     Indication: DIABETES MELLITUS NON-INSULIN-DEPENDENT
     Dosage: 10 MCG;BID;SC;5 MCG;BID;SC
     Route: 058
     Dates: start: 20061101, end: 20061228
  2. BYETTA [Suspect]
     Indication: DIABETES MELLITUS NON-INSULIN-DEPENDENT
     Dosage: 10 MCG;BID;SC;5 MCG;BID;SC
     Route: 058
     Dates: start: 20061229
  3. ACTOS [Concomitant]
  4. HUMALOG [Concomitant]
  5. HUMULIN N [Concomitant]

REACTIONS (2)
  - BLOOD GLUCOSE INCREASED [None]
  - FUNGAL INFECTION [None]
